FAERS Safety Report 18815315 (Version 1)
Quarter: 2021Q1

REPORT INFORMATION
  Report Type: Spontaneous
  Country: US (occurrence: US)
  Receive Date: 20210129
  Receipt Date: 20210129
  Transmission Date: 20210419
  Serious: No
  Sender: FDA-Public Use
  Company Number: None

PATIENT
  Age: 20 Year
  Sex: Female

DRUGS (1)
  1. HUMIRA [Suspect]
     Active Substance: ADALIMUMAB
     Indication: HIDRADENITIS
     Dosage: OTHER DOSE:40/0.4;OTHER FREQUENCY:EVERY 14 DAYS;?
     Route: 058
     Dates: start: 202012

REACTIONS (3)
  - Product dose omission issue [None]
  - Needle issue [None]
  - Device malfunction [None]

NARRATIVE: CASE EVENT DATE: 20210128
